FAERS Safety Report 8438227 (Version 4)
Quarter: 2012Q4

REPORT INFORMATION
  Report Type: 
  Country: US (occurrence: US)
  Receive Date: 20120302
  Receipt Date: 20121029
  Transmission Date: 20130627
  Serious: Yes (Hospitalization)
  Sender: FDA-Public Use
  Company Number: US-GLAXOSMITHKLINE-A0932377A

PATIENT
  Age: 58 Year
  Sex: Male
  Weight: 120.5 kg

DRUGS (1)
  1. AVANDIA [Suspect]
     Indication: DIABETES MELLITUS
     Route: 048
     Dates: start: 20030603, end: 200611

REACTIONS (9)
  - Cardiac disorder [Not Recovered/Not Resolved]
  - Cardiovascular disorder [Unknown]
  - Pain [Unknown]
  - Cardiac operation [Unknown]
  - Stent placement [Unknown]
  - Cardiovascular disorder [Unknown]
  - Mobility decreased [Unknown]
  - Aortic dissection [Unknown]
  - Cardiac failure congestive [Unknown]
